FAERS Safety Report 10065067 (Version 1)
Quarter: 2014Q2

REPORT INFORMATION
  Report Type: Spontaneous
  Country: US (occurrence: US)
  Receive Date: 20140408
  Receipt Date: 20140408
  Transmission Date: 20141212
  Serious: Yes (Other)
  Sender: FDA-Public Use
  Company Number: US-RB-064724-14

PATIENT
  Age: 21 Year
  Sex: Female

DRUGS (1)
  1. MUCINEX FAST MAX CAPLETS COLD, FLU AND SORE THROAT [Suspect]
     Indication: PRODUCT USED FOR UNKNOWN INDICATION
     Dosage: PATIENT TOOK LAST DOSE ON 31-MAR-2014.
     Route: 048
     Dates: start: 20140330

REACTIONS (1)
  - Eyelid oedema [Not Recovered/Not Resolved]
